FAERS Safety Report 7904526-5 (Version None)
Quarter: 2011Q4

REPORT INFORMATION
  Report Type: 
  Country: None (occurrence: None)
  Receive Date: 20111109
  Receipt Date: 20111028
  Transmission Date: 20120403
  Serious: Yes (Other)
  Sender: FDA-Public Use
  Company Number: US-BAYER-2011-067466

PATIENT
  Age: 34 Year
  Sex: Female
  Weight: 99.773 kg

DRUGS (8)
  1. LEXAPRO [Concomitant]
     Indication: DEPRESSION
     Dosage: 10 MG, UNK
     Route: 048
     Dates: start: 20090126, end: 20091124
  2. ANTIBIOTICS [Concomitant]
  3. MULTI-VITAMIN [Concomitant]
  4. AZOR [Concomitant]
     Indication: BLOOD PRESSURE ABNORMAL
     Dosage: UNK MG, UNK
     Route: 048
     Dates: start: 20090126, end: 20090924
  5. ACEBUTOLOL [Concomitant]
     Indication: HYPERTENSION
  6. DROSPIRENONE AND ETHINYL ESTRADIOL [Suspect]
     Indication: ACNE
     Dosage: UNK
     Dates: start: 20021201, end: 20090101
  7. ANTIHYPERTENSIVES [Concomitant]
     Indication: HYPERTENSION
     Dosage: UNK
     Dates: start: 20020101
  8. CATAPRES [Concomitant]

REACTIONS (7)
  - CHOLECYSTITIS CHRONIC [None]
  - CHOLELITHIASIS [None]
  - INJURY [None]
  - PAIN [None]
  - NAUSEA [None]
  - BILIARY COLIC [None]
  - INFECTION [None]
